FAERS Safety Report 5589217-0 (Version None)
Quarter: 2008Q1

REPORT INFORMATION
  Report Type: 
  Country: None (occurrence: None)
  Receive Date: 20080114
  Receipt Date: 20080103
  Transmission Date: 20080703
  Serious: Yes (Other)
  Sender: FDA-Public Use
  Company Number: PHBS2008IL00478

PATIENT
  Age: 91 Year
  Sex: Male

DRUGS (4)
  1. METOPROLOL [Suspect]
     Indication: MYOCARDIAL ISCHAEMIA
     Dosage: UNK, UNK
  2. ASPIRIN [Concomitant]
  3. CILAZAPRIL [Concomitant]
  4. OMEPRAZOLE [Concomitant]

REACTIONS (1)
  - NEUROENDOCRINE CARCINOMA OF THE SKIN [None]
